FAERS Safety Report 4426266-X (Version None)
Quarter: 2004Q3

REPORT INFORMATION
  Report Type: 
  Country: None (occurrence: None)
  Receive Date: 20040811
  Receipt Date: 20040803
  Transmission Date: 20050211
  Serious: Yes (Other)
  Sender: FDA-Public Use
  Company Number: HQWYE739403AUG04

PATIENT
  Age: 25 Year
  Sex: Female

DRUGS (2)
  1. NEOVLAR (LEVONORGESTREL/ ETHINYL ESTRADIOL, TABLET) [Suspect]
     Indication: CONTRACEPTION
     Dosage: SEE IMAGE
     Route: 048
     Dates: start: 19980101, end: 20040701
  2. NEOVLAR (LEVONORGESTREL/ ETHINYL ESTRADIOL, TABLET) [Suspect]
     Indication: CONTRACEPTION
     Dosage: SEE IMAGE
     Route: 048
     Dates: start: 20040726

REACTIONS (4)
  - BLOOD PRESSURE INCREASED [None]
  - HEADACHE [None]
  - NAUSEA [None]
  - VISION BLURRED [None]
